FAERS Safety Report 6910583-5 (Version None)
Quarter: 2010Q3

REPORT INFORMATION
  Report Type: 
  Country: None (occurrence: None)
  Receive Date: 20100806
  Receipt Date: 20100730
  Transmission Date: 20110219
  Serious: Yes (Hospitalization)
  Sender: FDA-Public Use
  Company Number: JP-PFIZER INC-2010095546

PATIENT
  Age: 60 Year
  Sex: Male
  Weight: 71.2 kg

DRUGS (2)
  1. SOLU-MEDROL [Suspect]
     Indication: ALOPECIA AREATA
     Dosage: 500 MG, 2X/DAY
     Route: 017
     Dates: start: 20100630, end: 20100702
  2. DERMOVATE [Concomitant]
     Dosage: UNK
     Route: 062

REACTIONS (3)
  - ABDOMINAL PAIN [None]
  - DUODENAL PERFORATION [None]
  - PERITONITIS [None]
